FAERS Safety Report 6197961-X (Version None)
Quarter: 2009Q2

REPORT INFORMATION
  Report Type: 
  Country: None (occurrence: None)
  Receive Date: 20090521
  Receipt Date: 20090515
  Transmission Date: 20091009
  Serious: Yes (Other)
  Sender: FDA-Public Use
  Company Number: B0574667A

PATIENT
  Age: 72 Year
  Sex: Male

DRUGS (1)
  1. VALTREX [Suspect]
     Indication: DRUG USE FOR UNKNOWN INDICATION
     Route: 048
     Dates: end: 20090511

REACTIONS (3)
  - BLOOD CREATININE INCREASED [None]
  - DELIRIUM [None]
  - ENCEPHALOPATHY [None]
